FAERS Safety Report 19184041 (Version 1)
Quarter: 2021Q2

REPORT INFORMATION
  Report Type: Spontaneous
  Country: US (occurrence: US)
  Receive Date: 20210426
  Receipt Date: 20210426
  Transmission Date: 20210717
  Serious: Yes (Other)
  Sender: FDA-Public Use
  Company Number: None

PATIENT
  Age: 42 Year
  Sex: Female
  Weight: 90 kg

DRUGS (4)
  1. BACLOFEN. [Suspect]
     Active Substance: BACLOFEN
     Indication: MUSCLE SPASMS
     Dosage: ?          QUANTITY:30 TABLET(S);?
     Route: 048
  2. VIBRATOR [Concomitant]
  3. COZAAR [Concomitant]
     Active Substance: LOSARTAN POTASSIUM
  4. TYLENOL [Concomitant]
     Active Substance: ACETAMINOPHEN

REACTIONS (2)
  - Depression [None]
  - Anorgasmia [None]

NARRATIVE: CASE EVENT DATE: 20160107
